FAERS Safety Report 10090083 (Version 1)
Quarter: 2014Q2

REPORT INFORMATION
  Report Type: Report from Study
  Country: DE (occurrence: DE)
  Receive Date: 20140421
  Receipt Date: 20140421
  Transmission Date: 20141212
  Serious: Yes (Other)
  Sender: FDA-Public Use
  Company Number: DE-US-EMD SERONO, INC.-7283653

PATIENT
  Sex: Female

DRUGS (1)
  1. REBIF [Suspect]
     Indication: MULTIPLE SCLEROSIS
     Route: 058
     Dates: start: 2000, end: 2012

REACTIONS (3)
  - Tonsillar disorder [Unknown]
  - Multiple sclerosis relapse [Unknown]
  - Influenza like illness [Unknown]
